FAERS Safety Report 9837902 (Version 2)
Quarter: 2014Q1

REPORT INFORMATION
  Report Type: Report from Study
  Country: JP (occurrence: JP)
  Receive Date: 20140123
  Receipt Date: 20140227
  Transmission Date: 20141002
  Serious: Yes (Death)
  Sender: FDA-Public Use
  Company Number: JP-PFIZER INC-2014015925

PATIENT
  Age: 4 Month
  Sex: Female
  Weight: 2.9 kg

DRUGS (7)
  1. REVATIO [Suspect]
     Indication: PULMONARY ARTERIAL HYPERTENSION
     Dosage: 3 MG DAILY (IN 4 DIVIDED PORTIONS DAILY)
     Route: 054
     Dates: start: 20120204, end: 20120204
  2. REVATIO [Suspect]
     Dosage: 6 MG DAILY (IN 6 DIVIDED PORTIONS DAILY)
     Route: 054
     Dates: start: 20120205, end: 20120207
  3. REVATIO [Suspect]
     Dosage: 9 MG DAILY (IN 6 DVIDED PORTINOS DAILY)
     Route: 054
     Dates: start: 20120208
  4. LASIX [Concomitant]
     Indication: PULMONARY HYPERTENSION
     Dosage: UNK
     Route: 042
  5. HANP [Concomitant]
     Indication: PULMONARY HYPERTENSION
     Dosage: UNK
     Route: 042
  6. MILRINONE [Concomitant]
     Indication: PULMONARY HYPERTENSION
     Dosage: UNK
     Route: 042
  7. DOBUTAMINE [Concomitant]
     Indication: PULMONARY HYPERTENSION
     Dosage: UNK
     Route: 042

REACTIONS (1)
  - Pulmonary haemorrhage [Fatal]
